FAERS Safety Report 11055238 (Version 1)
Quarter: 2015Q2

REPORT INFORMATION
  Report Type: Spontaneous
  Country: US (occurrence: None)
  Receive Date: 20150421
  Receipt Date: 20150421
  Transmission Date: 20150821
  Serious: Yes (Disabling)
  Sender: FDA-Public Use
  Company Number: None

PATIENT
  Age: 61 Year
  Sex: Female
  Weight: 50 kg

DRUGS (2)
  1. IBRANCE [Suspect]
     Active Substance: PALBOCICLIB
     Indication: BREAST CANCER METASTATIC
     Route: 048
     Dates: start: 20150222, end: 20150313
  2. MARIJUANA SUPPLEMENTS (THC AND CBD) [Concomitant]

REACTIONS (2)
  - VIIth nerve paralysis [None]
  - Thrombocytopenia [None]

NARRATIVE: CASE EVENT DATE: 20150324
